FAERS Safety Report 14843951 (Version 1)
Quarter: 2018Q2

REPORT INFORMATION
  Report Type: Spontaneous
  Country: US (occurrence: US)
  Receive Date: 20180418
  Receipt Date: 20180418
  Transmission Date: 20180711
  Serious: Yes (Other)
  Sender: FDA-Public Use
  Company Number: None

PATIENT
  Age: 48 Year
  Sex: Female

DRUGS (17)
  1. DEXTROAMPHET SACCHARAT, AMPHET ASPARTATE, DEXTROAMPHET SULFATE AND AMPHET SULFAT [Concomitant]
     Active Substance: AMPHETAMINE ASPARTATE\AMPHETAMINE SULFATE\DEXTROAMPHETAMINE SACCHARATE\DEXTROAMPHETAMINE SULFATE
  2. CLINDAMYCIN LOT [Concomitant]
  3. DOXYCYCL HYC [Concomitant]
  4. TIZANIDINE. [Concomitant]
     Active Substance: TIZANIDINE
  5. DESVENLAFAX [Concomitant]
  6. LINZESS [Concomitant]
     Active Substance: LINACLOTIDE
  7. LORAZEPAM. [Concomitant]
     Active Substance: LORAZEPAM
  8. PRISTIQ EXTENDED-RELEASE [Concomitant]
     Active Substance: DESVENLAFAXINE SUCCINATE
  9. TECFIDERA [Concomitant]
     Active Substance: DIMETHYL FUMARATE
  10. LEVOTHYROXIN [Concomitant]
     Active Substance: LEVOTHYROXINE
  11. XELJANZ XR [Suspect]
     Active Substance: TOFACITINIB CITRATE
     Indication: RHEUMATOID ARTHRITIS
     Route: 048
     Dates: start: 201510
  12. FUROSEMIDE. [Concomitant]
     Active Substance: FUROSEMIDE
  13. MEDROXYPR AC [Concomitant]
  14. OXYCODONE AND ACETAMINOPHEN [Concomitant]
     Active Substance: ACETAMINOPHEN\OXYCODONE HYDROCHLORIDE
  15. TOPIRAMATE. [Concomitant]
     Active Substance: TOPIRAMATE
  16. FENTANYL. [Concomitant]
     Active Substance: FENTANYL
  17. VANCOMYCIN/DEX [Concomitant]

REACTIONS (2)
  - Flushing [None]
  - Thyroid cancer [None]

NARRATIVE: CASE EVENT DATE: 2018
